FAERS Safety Report 21604711 (Version 3)
Quarter: 2022Q4

REPORT INFORMATION
  Report Type: Spontaneous
  Country: JP (occurrence: JP)
  Receive Date: 20221116
  Receipt Date: 20221125
  Transmission Date: 20230113
  Serious: Yes (Other)
  Sender: FDA-Public Use
  Company Number: JP-MLMSERVICE-20221104-3843555-1

PATIENT
  Age: 73 Year
  Sex: Female

DRUGS (3)
  1. DOCETAXEL [Suspect]
     Active Substance: DOCETAXEL
     Indication: Metastases to lung
     Dosage: TOTAL OF 10 COURSES OF BI-WEEKLY FOR APPROXIMATELY 1 YEAR
  2. DOCETAXEL [Suspect]
     Active Substance: DOCETAXEL
     Indication: Adenoid cystic carcinoma
  3. DOCETAXEL [Suspect]
     Active Substance: DOCETAXEL
     Indication: Metastatic lymphoma

REACTIONS (3)
  - Urinary tract infection [Unknown]
  - Leukopenia [Unknown]
  - Neutropenia [Unknown]
